FAERS Safety Report 16964243 (Version 1)
Quarter: 2019Q4

REPORT INFORMATION
  Report Type: Spontaneous
  Country: US (occurrence: US)
  Receive Date: 20191025
  Receipt Date: 20191025
  Transmission Date: 20200122
  Serious: No
  Sender: FDA-Public Use
  Company Number: None

PATIENT
  Age: 48 Year
  Sex: Female
  Weight: 85.5 kg

DRUGS (7)
  1. AMITRIPTYLINE [Concomitant]
     Active Substance: AMITRIPTYLINE
  2. VITAMIN [Concomitant]
     Active Substance: VITAMINS
  3. GABAPENTIN. [Concomitant]
     Active Substance: GABAPENTIN
  4. MILITIA [Concomitant]
  5. ARIPIPAZOLE [Concomitant]
     Active Substance: ARIPIPRAZOLE
  6. RANITIDINE. [Suspect]
     Active Substance: RANITIDINE
     Indication: DYSPEPSIA
     Dosage: ?          QUANTITY:90 TABLET(S);?
     Route: 048
     Dates: start: 20190809, end: 20191025
  7. CALICUM [Concomitant]

REACTIONS (1)
  - Drug ineffective [None]
